FAERS Safety Report 18522598 (Version 2)
Quarter: 2020Q4

REPORT INFORMATION
  Report Type: Spontaneous
  Country: US (occurrence: US)
  Receive Date: 20201119
  Receipt Date: 20201126
  Transmission Date: 20210114
  Serious: Yes (Death, Life-Threatening, Hospitalization)
  Sender: FDA-Public Use
  Company Number: US-STRIDES ARCOLAB LIMITED-2020SP014154

PATIENT
  Age: 5 Decade
  Sex: Female

DRUGS (8)
  1. MYCOPHENOLATE MOFETIL. [Suspect]
     Active Substance: MYCOPHENOLATE MOFETIL
     Indication: RENAL TRANSPLANT
     Dosage: 1000 MILLIGRAM, BID
     Route: 065
  2. TACROLIMUS. [Suspect]
     Active Substance: TACROLIMUS
     Indication: RENAL TRANSPLANT
     Dosage: UNK
     Route: 065
  3. BELATACEPT [Suspect]
     Active Substance: BELATACEPT
     Indication: RENAL TRANSPLANT
     Dosage: 5 MILLIGRAM/KILOGRAM, EVERY 4 WEEKS
     Route: 065
  4. PREDNISOLONE. [Suspect]
     Active Substance: PREDNISOLONE
     Indication: RENAL TRANSPLANT
     Dosage: 5 MILLIGRAM, DAILY
     Route: 065
  5. PREDNISOLONE. [Suspect]
     Active Substance: PREDNISOLONE
     Dosage: 10 MILLIGRAM, PER DAY
     Route: 065
  6. THYMOGLOBULIN [Suspect]
     Active Substance: LAPINE T-LYMPHOCYTE IMMUNE GLOBULIN
     Indication: RENAL TRANSPLANT
     Dosage: UNK
     Route: 065
  7. MYCOPHENOLATE MOFETIL. [Suspect]
     Active Substance: MYCOPHENOLATE MOFETIL
     Dosage: UNK, DOSE WAS HALVED
     Route: 065
  8. MYCOPHENOLATE MOFETIL. [Suspect]
     Active Substance: MYCOPHENOLATE MOFETIL
     Dosage: UNK, FULL DOSE WAS REINTRODUCED
     Route: 065

REACTIONS (38)
  - Meningitis cryptococcal [Fatal]
  - Gait disturbance [Unknown]
  - Hyperkalaemia [Unknown]
  - Herpes simplex meningitis [Fatal]
  - Haemoptysis [Unknown]
  - Pneumothorax [Unknown]
  - Pain in extremity [Unknown]
  - Oedema peripheral [Unknown]
  - Fatigue [Unknown]
  - Flank pain [Unknown]
  - Anuria [Unknown]
  - Myositis [Unknown]
  - Genital herpes simplex [Unknown]
  - Pulmonary embolism [Unknown]
  - Hypotension [Unknown]
  - Decreased appetite [Unknown]
  - Sinusitis [Unknown]
  - Septic shock [Unknown]
  - Mental status changes [Unknown]
  - Lung opacity [Unknown]
  - Chronic kidney disease [Unknown]
  - Confusional state [Unknown]
  - Pseudomonas infection [Unknown]
  - Muscle necrosis [Unknown]
  - Nodule [Unknown]
  - Acidosis [Unknown]
  - Klebsiella infection [Unknown]
  - Cryptococcosis [Unknown]
  - Pneumocystis jirovecii pneumonia [Unknown]
  - Dyspnoea [Unknown]
  - Hypoxia [Unknown]
  - Chills [Unknown]
  - Toxicity to various agents [Unknown]
  - Respiratory failure [Unknown]
  - Cognitive disorder [Unknown]
  - Multiple organ dysfunction syndrome [Unknown]
  - Tachycardia [Unknown]
  - Haemodynamic instability [Unknown]
